FAERS Safety Report 6407815-9 (Version None)
Quarter: 2009Q4

REPORT INFORMATION
  Report Type: 
  Country: None (occurrence: None)
  Receive Date: 20091020
  Receipt Date: 20091013
  Transmission Date: 20100525
  Serious: Yes (Hospitalization)
  Sender: FDA-Public Use
  Company Number: DE-ABBOTT-04P-062-0258984-00

PATIENT
  Sex: Female
  Weight: 58 kg

DRUGS (10)
  1. HUMIRA [Suspect]
     Indication: RHEUMATOID ARTHRITIS
     Route: 058
     Dates: start: 20040127
  2. ARELIX ACE [Concomitant]
     Indication: HYPERTENSION
     Dates: start: 19980101
  3. ATOSIL [Concomitant]
     Indication: DEPRESSION
     Dates: end: 20060101
  4. AMITRIPTYLINE HYDROCHLORIDE [Concomitant]
     Indication: DEPRESSION
  5. PANTOPRAZOLE SODIUM [Concomitant]
     Indication: PROPHYLAXIS AGAINST GASTROINTESTINAL ULCER
  6. PANTOPRAZOLE SODIUM [Concomitant]
     Indication: GASTRIC ULCER
  7. HUMIRA [Concomitant]
     Indication: RHEUMATOID ARTHRITIS
     Route: 058
  8. METHOTREXATE [Concomitant]
     Indication: RHEUMATOID ARTHRITIS
     Dates: start: 20010901
  9. BELOC ZOK [Concomitant]
     Indication: HYPERTENSION
  10. ZOCOR [Concomitant]
     Indication: HYPERCHOLESTEROLAEMIA
     Dates: start: 20040401

REACTIONS (1)
  - DEAFNESS NEUROSENSORY [None]
